FAERS Safety Report 12512491 (Version 2)
Quarter: 2016Q3

REPORT INFORMATION
  Report Type: Spontaneous
  Country: US (occurrence: US)
  Receive Date: 20160630
  Receipt Date: 20160912
  Transmission Date: 20161109
  Serious: Yes (Hospitalization)
  Sender: FDA-Public Use
  Company Number: US-JNJFOC-20160512477

PATIENT
  Age: 75 Year
  Sex: Female

DRUGS (5)
  1. XARELTO [Suspect]
     Active Substance: RIVAROXABAN
     Indication: THROMBOSIS PROPHYLAXIS
     Dosage: DOSAGE MENTIONED AS 15MG/20 MG
     Route: 048
     Dates: start: 20140428, end: 20140714
  2. XARELTO [Suspect]
     Active Substance: RIVAROXABAN
     Indication: ATRIAL FIBRILLATION
     Dosage: DOSAGE MENTIONED AS 15MG/20 MG
     Route: 048
     Dates: start: 20140428, end: 20140714
  3. XARELTO [Suspect]
     Active Substance: RIVAROXABAN
     Indication: CEREBROVASCULAR ACCIDENT PROPHYLAXIS
     Dosage: DOSAGE MENTIONED AS 15MG/20 MG
     Route: 048
     Dates: start: 20140428, end: 20140714
  4. XARELTO [Suspect]
     Active Substance: RIVAROXABAN
     Indication: THROMBOSIS PROPHYLAXIS
     Dosage: DOSAGE MENTIONED AS 15MG/20 MG
     Route: 048
     Dates: start: 20140428, end: 20140714
  5. XARELTO [Suspect]
     Active Substance: RIVAROXABAN
     Indication: THROMBOSIS PROPHYLAXIS
     Dosage: DOSAGE MENTIONED AS 15MG/20 MG
     Route: 048
     Dates: start: 20140428, end: 20140714

REACTIONS (2)
  - Lower gastrointestinal haemorrhage [Recovering/Resolving]
  - Contusion [Unknown]

NARRATIVE: CASE EVENT DATE: 20140630
